FAERS Safety Report 4873992-4 (Version None)
Quarter: 2006Q1

REPORT INFORMATION
  Report Type: 
  Country: None (occurrence: None)
  Receive Date: 20060106
  Receipt Date: 20050222
  Transmission Date: 20060701
  Serious: Yes (Death, Hospitalization)
  Sender: FDA-Public Use
  Company Number: 2005GB00371

PATIENT
  Age: 77 Year
  Sex: Male

DRUGS (5)
  1. LOSEC [Suspect]
     Indication: OESOPHAGITIS
     Route: 048
     Dates: start: 20041115, end: 20041123
  2. DOMPERIDONE [Concomitant]
     Indication: NAUSEA
     Route: 048
     Dates: start: 20041115, end: 20041123
  3. LOSARTAN [Concomitant]
     Indication: HYPERTENSION
     Route: 048
     Dates: start: 20040429
  4. ATENOLOL [Concomitant]
     Indication: HYPERTENSION
     Route: 048
     Dates: start: 20010816
  5. SIMVASTATIN [Concomitant]
     Indication: BLOOD CHOLESTEROL INCREASED
     Route: 048
     Dates: start: 19990305

REACTIONS (4)
  - BONE MARROW FAILURE [None]
  - DRUG ERUPTION [None]
  - NEUTROPENIA [None]
  - RENAL FAILURE ACUTE [None]
